FAERS Safety Report 11560382 (Version 2)
Quarter: 2015Q3

REPORT INFORMATION
  Report Type: Spontaneous
  Country: US (occurrence: US)
  Receive Date: 20150928
  Receipt Date: 20150930
  Transmission Date: 20151125
  Serious: Yes (Other)
  Sender: FDA-Public Use
  Company Number: US-PFIZER INC-2015311221

PATIENT
  Age: 26 Year
  Sex: Female

DRUGS (2)
  1. DILANTIN [Suspect]
     Active Substance: PHENYTOIN
     Indication: EPILEPSY
     Dosage: UNK
  2. TEGRETOL [Suspect]
     Active Substance: CARBAMAZEPINE
     Indication: EPILEPSY
     Dosage: UNK

REACTIONS (6)
  - Tooth disorder [Unknown]
  - Gingival hyperplasia [Unknown]
  - Gingival bleeding [Unknown]
  - Alopecia [Unknown]
  - Dry mouth [Not Recovered/Not Resolved]
  - Tongue neoplasm benign [Unknown]

NARRATIVE: CASE EVENT DATE: 1988
